FAERS Safety Report 5334791-2 (Version None)
Quarter: 2007Q2

REPORT INFORMATION
  Report Type: 
  Country: None (occurrence: None)
  Receive Date: 20070525
  Receipt Date: 20070517
  Transmission Date: 20071010
  Serious: Yes (Other)
  Sender: FDA-Public Use
  Company Number: PHHO2007US08517

PATIENT
  Age: 47 Year
  Sex: Male

DRUGS (6)
  1. PROLEUKIN [Suspect]
     Indication: METASTATIC MALIGNANT MELANOMA
     Dosage: 720000 IU/KG 1/8 HR
     Route: 042
     Dates: start: 20030512
  2. NORVASC [Concomitant]
  3. LOTENSIN [Concomitant]
  4. HYDROCHLOROTHIAZIDE [Concomitant]
  5. AMITRIPTYLINE HCL [Concomitant]
  6. SYNTHROID [Concomitant]

REACTIONS (5)
  - BLOOD CREATININE INCREASED [None]
  - DYSPNOEA [None]
  - HYPOPHOSPHATAEMIA [None]
  - LYMPHOPENIA [None]
  - MENTAL STATUS CHANGES [None]
